FAERS Safety Report 9181249 (Version 2)
Quarter: 2013Q1

REPORT INFORMATION
  Report Type: Spontaneous
  Country: US (occurrence: US)
  Receive Date: 20130322
  Receipt Date: 20130322
  Transmission Date: 20140127
  Serious: No
  Sender: FDA-Public Use
  Company Number: US-MYLANLABS-2012S1023467

PATIENT
  Age: 69 Year
  Sex: Female
  Weight: 126.55 kg

DRUGS (9)
  1. EMSAM [Suspect]
     Indication: DEPRESSION
     Route: 062
     Dates: start: 20120712
  2. VICODIN [Concomitant]
  3. LASIX [Concomitant]
  4. IPRATROPIUM [Concomitant]
  5. NAPROXEN [Concomitant]
  6. OMEPRAZOLE [Concomitant]
  7. ROSUVASTATIN [Concomitant]
  8. BENAZEPRIL [Concomitant]
  9. GLUCOPHAGE [Concomitant]

REACTIONS (2)
  - Application site dermatitis [Not Recovered/Not Resolved]
  - Wrong technique in drug usage process [Recovered/Resolved]
